FAERS Safety Report 6371886-9 (Version None)
Quarter: 2009Q3

REPORT INFORMATION
  Report Type: 
  Country: None (occurrence: None)
  Receive Date: 20090923
  Receipt Date: 20090915
  Transmission Date: 20100115
  Serious: Yes (Other)
  Sender: FDA-Public Use
  Company Number: AU-SANOFI-SYNTHELABO-A01200909673

PATIENT
  Sex: Female

DRUGS (4)
  1. FLUOROURACIL [Suspect]
     Dosage: EVERY 15 DAYS
     Route: 042
     Dates: start: 20090703, end: 20090731
  2. BEVACIZUMAB [Suspect]
     Dosage: EVERY 15 DAYS
     Route: 042
     Dates: start: 20090703, end: 20090731
  3. OXALIPLATIN [Suspect]
     Dosage: EVERY 15 DAYS
     Route: 042
     Dates: start: 20090703, end: 20090731
  4. FOLINIC ACID [Suspect]
     Dosage: EVERY 15 DAYS
     Route: 042
     Dates: start: 20090703, end: 20090731

REACTIONS (1)
  - INTESTINAL PERFORATION [None]
